FAERS Safety Report 6429621-1 (Version None)
Quarter: 2009Q4

REPORT INFORMATION
  Report Type: 
  Country: None (occurrence: None)
  Receive Date: 20091103
  Receipt Date: 20091019
  Transmission Date: 20100525
  Serious: Yes (Death)
  Sender: FDA-Public Use
  Company Number: 02100-JPN-06-0094

PATIENT
  Age: 68 Year
  Sex: Female
  Weight: 51.5 kg

DRUGS (7)
  1. PLETAL [Suspect]
     Indication: CEREBRAL INFARCTION
     Dosage: 100 MG, BID, ORAL
     Route: 048
     Dates: start: 20050723
  2. ADALAT CR (NIFEDIPINE) TABLET [Concomitant]
  3. MUCOSTA (REBAMIPIDE) TABLET [Concomitant]
  4. DAZEN (SERRAPEPTASE) TABLET [Concomitant]
  5. PL (NON-PYRINE PREPARATION FOR COLD SYNDROME [Concomitant]
  6. MEDICON (DEXTROMETHORPHAN HYDROBROMIDE) [Concomitant]
  7. TENORMIN [Concomitant]

REACTIONS (10)
  - ACUTE MYOCARDIAL INFARCTION [None]
  - ATRIAL FIBRILLATION [None]
  - BUNDLE BRANCH BLOCK LEFT [None]
  - CARDIO-RESPIRATORY DISTRESS [None]
  - COMA SCALE ABNORMAL [None]
  - DYSPNOEA [None]
  - FALL [None]
  - LEFT VENTRICULAR HYPERTROPHY [None]
  - PRODUCTIVE COUGH [None]
  - UPPER RESPIRATORY TRACT INFLAMMATION [None]
